FAERS Safety Report 4634935-1 (Version None)
Quarter: 2005Q2

REPORT INFORMATION
  Report Type: 
  Country: None (occurrence: None)
  Receive Date: 20050412
  Receipt Date: 20050331
  Transmission Date: 20051028
  Serious: Yes (Disabling)
  Sender: FDA-Public Use
  Company Number: MK200504-0011-1

PATIENT
  Age: 7 Year
  Sex: Female

DRUGS (2)
  1. TOFRANIL [Suspect]
     Indication: ENURESIS
     Dosage: 25MG, DAILY
     Dates: start: 20020501
  2. BUP-4 [Suspect]
     Indication: ENURESIS
     Dosage: 10MG,DAILY
     Dates: start: 20020501

REACTIONS (2)
  - DEAFNESS UNILATERAL [None]
  - TINNITUS [None]
